FAERS Safety Report 14674881 (Version 2)
Quarter: 2018Q2

REPORT INFORMATION
  Report Type: Other
  Country: CA (occurrence: CA)
  Receive Date: 20180323
  Receipt Date: 20180422
  Transmission Date: 20180711
  Serious: Yes (Other)
  Sender: FDA-Public Use
  Company Number: CA-APOTEX-2018AP008198

PATIENT
  Age: 69 Year
  Sex: Female

DRUGS (1)
  1. SALBUTAMOL [Suspect]
     Active Substance: ALBUTEROL
     Indication: PRODUCT USED FOR UNKNOWN INDICATION
     Dosage: UNK
     Route: 065

REACTIONS (9)
  - Fibromyalgia [Recovered/Resolved]
  - Sleep apnoea syndrome [Recovered/Resolved]
  - Gastrooesophageal reflux disease [Recovered/Resolved]
  - Cataract [Recovered/Resolved]
  - Gastric hypomotility [Recovered/Resolved]
  - Peripheral vascular disorder [Recovered/Resolved]
  - Breast cancer [Recovered/Resolved]
  - Dry age-related macular degeneration [Recovered/Resolved]
  - Abscess [Recovered/Resolved]
